FAERS Safety Report 4739050-4 (Version None)
Quarter: 2005Q3

REPORT INFORMATION
  Report Type: 
  Country: None (occurrence: None)
  Receive Date: 20050801
  Receipt Date: 20040916
  Transmission Date: 20060218
  Serious: Yes (Life-Threatening, Hospitalization)
  Sender: FDA-Public Use
  Company Number: 207765

PATIENT
  Age: 75 Year
  Sex: Female
  Weight: 61.7 kg

DRUGS (5)
  1. RITUXAN [Suspect]
     Indication: CHRONIC LYMPHOCYTIC LEUKAEMIA
     Dosage: 610 MG, 1/WEEK, INTRAVENOUS
     Route: 042
     Dates: start: 20040620, end: 20040804
  2. RITUXAN [Suspect]
     Indication: CHRONIC LYMPHOCYTIC LEUKAEMIA
     Dosage: 610 MG, 1/WEEK, INTRAVENOUS
     Route: 042
     Dates: start: 20031001
  3. DIPHENHYDRAMINE HCL [Concomitant]
  4. IBUPROFEN [Concomitant]
  5. ACETAMINOPHEN [Concomitant]

REACTIONS (5)
  - HAEMOGLOBIN DECREASED [None]
  - MALAISE [None]
  - PLATELET COUNT DECREASED [None]
  - PYREXIA [None]
  - RASH [None]
